FAERS Safety Report 12431887 (Version 7)
Quarter: 2022Q1

REPORT INFORMATION
  Report Type: Report from Study
  Country: CO (occurrence: CO)
  Receive Date: 20160603
  Receipt Date: 20220103
  Transmission Date: 20220423
  Serious: Yes (Other)
  Sender: FDA-Public Use
  Company Number: PHHY2016CO066331

PATIENT
  Age: 48 Year
  Sex: Male
  Weight: 70 kg

DRUGS (8)
  1. ELTROMBOPAG OLAMINE [Suspect]
     Active Substance: ELTROMBOPAG OLAMINE
     Indication: Immune thrombocytopenia
     Dosage: 2 DF, QD
     Route: 048
     Dates: start: 20150504
  2. ELTROMBOPAG OLAMINE [Suspect]
     Active Substance: ELTROMBOPAG OLAMINE
     Dosage: 75 MG, QD
     Route: 048
  3. ELTROMBOPAG OLAMINE [Suspect]
     Active Substance: ELTROMBOPAG OLAMINE
     Dosage: 100 MG, QD
     Route: 048
  4. ELTROMBOPAG OLAMINE [Suspect]
     Active Substance: ELTROMBOPAG OLAMINE
     Dosage: 150 MG, QD (3 TABLETS OF 25MG IN THE MORNING AND 3 TABLETS OF 25MG AT NIGHT)
     Route: 048
  5. ELTROMBOPAG OLAMINE [Suspect]
     Active Substance: ELTROMBOPAG OLAMINE
     Dosage: 50 MG, Q12H (5 YEARS AGO, (TABLET OF 25 MG)
     Route: 048
     Dates: end: 202005
  6. ELTROMBOPAG OLAMINE [Suspect]
     Active Substance: ELTROMBOPAG OLAMINE
     Dosage: 50 MG, Q12H (TABLET OF 25 MG)
     Route: 048
  7. ELTROMBOPAG OLAMINE [Suspect]
     Active Substance: ELTROMBOPAG OLAMINE
     Dosage: 100 MG, Q12H (5 YEARS AGO,25 MG  2 TABLETS IN MORNING AND 2 IN AFTERNOON)
     Route: 048
  8. ELTROMBOPAG OLAMINE [Suspect]
     Active Substance: ELTROMBOPAG OLAMINE
     Dosage: 50 UNK, Q12H
     Route: 065

REACTIONS (16)
  - Gastric ulcer [Unknown]
  - Platelet count decreased [Unknown]
  - Deafness bilateral [Unknown]
  - Malaise [Unknown]
  - Hypertension [Unknown]
  - Contusion [Unknown]
  - Burning sensation [Unknown]
  - Tinnitus [Unknown]
  - Pain [Not Recovered/Not Resolved]
  - Somnolence [Unknown]
  - Petechiae [Recovered/Resolved]
  - Ear pain [Not Recovered/Not Resolved]
  - Inner ear inflammation [Unknown]
  - Ear discomfort [Unknown]
  - Fatigue [Unknown]
  - Incorrect dose administered [Unknown]

NARRATIVE: CASE EVENT DATE: 20160506
